FAERS Safety Report 5934699-5 (Version None)
Quarter: 2008Q4

REPORT INFORMATION
  Report Type: 
  Country: None (occurrence: None)
  Receive Date: 20081029
  Receipt Date: 20081022
  Transmission Date: 20090506
  Serious: No
  Sender: FDA-Public Use
  Company Number: US-B.I. PHARMACEUTICALS,INC./RIDGEFIELD-2008-BP-16154BP

PATIENT
  Sex: Female

DRUGS (2)
  1. MICARDIS HCT [Suspect]
     Indication: HYPERTENSION
     Route: 048
     Dates: start: 20080101
  2. MICARDIS HCT [Suspect]
     Route: 048
     Dates: start: 20080101, end: 20080101

REACTIONS (2)
  - ARTHRALGIA [None]
  - FATIGUE [None]
